FAERS Safety Report 10401493 (Version 1)
Quarter: 2014Q1

REPORT INFORMATION
  Report Type: Spontaneous
  Country: US (occurrence: None)
  Receive Date: 20130815
  Receipt Date: 20130815
  Transmission Date: 20141002
  Serious: Yes (Other)
  Sender: FDA-Public Use
  Company Number: ADR-2012-01735

PATIENT
  Age: 39 Year
  Sex: Male

DRUGS (3)
  1. BACLOFEN INTRATHECAL [Suspect]
     Indication: PAIN
  2. BACLOFEN INTRATHECAL [Suspect]
     Indication: INTERVERTEBRAL DISC DEGENERATION
  3. INFUMORPH [Concomitant]

REACTIONS (4)
  - Muscle spasticity [None]
  - Hypoaesthesia [None]
  - Underdose [None]
  - Infusion site mass [None]
